FAERS Safety Report 22610174 (Version 4)
Quarter: 2024Q2

REPORT INFORMATION
  Report Type: Report from Study
  Country: CO (occurrence: CO)
  Receive Date: 20230616
  Receipt Date: 20240613
  Transmission Date: 20240716
  Serious: Yes (Other)
  Sender: FDA-Public Use
  Company Number: CO-TAKEDA-2023TUS047286

PATIENT
  Age: 19 Year
  Sex: Male
  Weight: 87 kg

DRUGS (10)
  1. ANTIHEMOPHILIC FACTOR, PEGYLATED (MW 20000) HUMAN SEQUENCE RECOMBINANT [Suspect]
     Active Substance: ANTIHEMOPHILIC FACTOR, PEGYLATED (MW 20000) HUMAN SEQUENCE RECOMBINANT
     Indication: Factor VIII deficiency
     Dosage: 4000 INTERNATIONAL UNIT
     Route: 042
     Dates: start: 201903
  2. ANTIHEMOPHILIC FACTOR, PEGYLATED (MW 20000) HUMAN SEQUENCE RECOMBINANT [Suspect]
     Active Substance: ANTIHEMOPHILIC FACTOR, PEGYLATED (MW 20000) HUMAN SEQUENCE RECOMBINANT
     Indication: Factor VIII deficiency
     Dosage: 4000 INTERNATIONAL UNIT
     Route: 042
     Dates: start: 201903
  3. ANTIHEMOPHILIC FACTOR, PEGYLATED (MW 20000) HUMAN SEQUENCE RECOMBINANT [Suspect]
     Active Substance: ANTIHEMOPHILIC FACTOR, PEGYLATED (MW 20000) HUMAN SEQUENCE RECOMBINANT
     Indication: Factor VIII deficiency
     Dosage: 4000 INTERNATIONAL UNIT
     Route: 042
     Dates: start: 201903
  4. ANTIHEMOPHILIC FACTOR, PEGYLATED (MW 20000) HUMAN SEQUENCE RECOMBINANT [Suspect]
     Active Substance: ANTIHEMOPHILIC FACTOR, PEGYLATED (MW 20000) HUMAN SEQUENCE RECOMBINANT
     Dosage: 4000 INTERNATIONAL UNIT
     Route: 042
     Dates: start: 20190510
  5. ANTIHEMOPHILIC FACTOR, PEGYLATED (MW 20000) HUMAN SEQUENCE RECOMBINANT [Suspect]
     Active Substance: ANTIHEMOPHILIC FACTOR, PEGYLATED (MW 20000) HUMAN SEQUENCE RECOMBINANT
     Dosage: 4000 INTERNATIONAL UNIT
     Route: 042
     Dates: start: 20190510
  6. ANTIHEMOPHILIC FACTOR, PEGYLATED (MW 20000) HUMAN SEQUENCE RECOMBINANT [Suspect]
     Active Substance: ANTIHEMOPHILIC FACTOR, PEGYLATED (MW 20000) HUMAN SEQUENCE RECOMBINANT
     Dosage: 4000 INTERNATIONAL UNIT
     Route: 042
     Dates: start: 20190510
  7. ANTIHEMOPHILIC FACTOR, PEGYLATED (MW 20000) HUMAN SEQUENCE RECOMBINANT [Suspect]
     Active Substance: ANTIHEMOPHILIC FACTOR, PEGYLATED (MW 20000) HUMAN SEQUENCE RECOMBINANT
     Dosage: 3000 INTERNATIONAL UNIT
     Route: 042
  8. ANTIHEMOPHILIC FACTOR, PEGYLATED (MW 20000) HUMAN SEQUENCE RECOMBINANT [Suspect]
     Active Substance: ANTIHEMOPHILIC FACTOR, PEGYLATED (MW 20000) HUMAN SEQUENCE RECOMBINANT
     Dosage: 3000 INTERNATIONAL UNIT
     Route: 042
  9. ANTIHEMOPHILIC FACTOR, PEGYLATED (MW 20000) HUMAN SEQUENCE RECOMBINANT [Suspect]
     Active Substance: ANTIHEMOPHILIC FACTOR, PEGYLATED (MW 20000) HUMAN SEQUENCE RECOMBINANT
     Dosage: 3000 INTERNATIONAL UNIT
     Route: 042
  10. BERIATE P [Concomitant]
     Active Substance: ANTIHEMOPHILIC FACTOR HUMAN
     Dosage: UNK
     Route: 065
     Dates: start: 20110101, end: 20190501

REACTIONS (8)
  - Haemarthrosis [Recovered/Resolved]
  - Inflammation [Not Recovered/Not Resolved]
  - Feeling hot [Not Recovered/Not Resolved]
  - Mobility decreased [Not Recovered/Not Resolved]
  - Pain [Not Recovered/Not Resolved]
  - Treatment failure [Unknown]
  - Arthralgia [Not Recovered/Not Resolved]
  - Product preparation error [Unknown]

NARRATIVE: CASE EVENT DATE: 20230412
